FAERS Safety Report 17200510 (Version 1)
Quarter: 2019Q4

REPORT INFORMATION
  Report Type: Spontaneous
  Country: US (occurrence: US)
  Receive Date: 20191203
  Receipt Date: 20191203
  Transmission Date: 20200122
  Serious: Yes (Death)
  Sender: FDA-Public Use
  Company Number: None

PATIENT
  Age: 90 Year
  Sex: Male
  Weight: 78 kg

DRUGS (1)
  1. YESCARTA [Suspect]
     Active Substance: AXICABTAGENE CILOLEUCEL
     Indication: DIFFUSE LARGE B-CELL LYMPHOMA
     Dates: start: 20190828

REACTIONS (7)
  - Neurotoxicity [None]
  - Shock [None]
  - Embolic stroke [None]
  - Pancytopenia [None]
  - Fluid overload [None]
  - Coagulopathy [None]
  - Respiratory failure [None]

NARRATIVE: CASE EVENT DATE: 20190928
